FAERS Safety Report 9166822 (Version 1)
Quarter: 2012Q4

REPORT INFORMATION
  Report Type: 
  Country: DE (occurrence: JP)
  Receive Date: 20121105
  Receipt Date: 20121105
  Transmission Date: 20130627
  Serious: Yes (Life-Threatening)
  Sender: FDA-Public Use
  Company Number: JP-BRACCO-006442

PATIENT
  Age: 65 None
  Sex: Male
  Weight: 60 kg

DRUGS (2)
  1. IOPAMIRON [Suspect]
     Indication: COMPUTERISED TOMOGRAM CORONARY ARTERY
     Dosage: 3.7 ml/sec for 12 seconds
     Route: 042
     Dates: start: 20121015, end: 20121015
  2. IOPAMIRON [Suspect]
     Indication: MYOCARDIAL ISCHAEMIA
     Dosage: 3.7 ml/sec for 12 seconds
     Route: 042
     Dates: start: 20121015, end: 20121015

REACTIONS (3)
  - Loss of consciousness [Recovered/Resolved]
  - Pulse absent [Recovered/Resolved]
  - Gaze palsy [Recovered/Resolved]
